FAERS Safety Report 24179105 (Version 1)
Quarter: 2024Q3

REPORT INFORMATION
  Report Type: Report from Study
  Country: PR (occurrence: PR)
  Receive Date: 20240806
  Receipt Date: 20240806
  Transmission Date: 20241017
  Serious: Yes (Other)
  Sender: ABBVIE
  Company Number: PR-ABBVIE-5865633

PATIENT
  Age: 47 Year
  Sex: Female
  Weight: 79 kg

DRUGS (2)
  1. HUMIRA [Suspect]
     Active Substance: ADALIMUMAB
     Indication: Rheumatoid arthritis
     Dosage: 40MG/0.4ML,  FORM STRENGTH: 40 MILLIGRAM
     Route: 058
     Dates: start: 20240701
  2. HUMIRA [Suspect]
     Active Substance: ADALIMUMAB
     Dosage: 40MG/0.4ML,  FORM STRENGTH: 40 MILLIGRAM
     Route: 058
     Dates: end: 202312

REACTIONS (7)
  - Ovarian mass [Not Recovered/Not Resolved]
  - Melanocytic naevus [Not Recovered/Not Resolved]
  - Anal incontinence [Recovered/Resolved]
  - Rheumatoid arthritis [Recovering/Resolving]
  - Renal cancer stage II [Recovered/Resolved]
  - Pain [Recovering/Resolving]
  - Weight decreased [Unknown]

NARRATIVE: CASE EVENT DATE: 20231001
